FAERS Safety Report 12591166 (Version 1)
Quarter: 2016Q3

REPORT INFORMATION
  Report Type: Spontaneous
  Country: US (occurrence: None)
  Receive Date: 20160725
  Receipt Date: 20160725
  Transmission Date: 20161109
  Serious: Yes (Other)
  Sender: FDA-Public Use
  Company Number: None

PATIENT
  Age: 38 Year
  Sex: Female
  Weight: 90.72 kg

DRUGS (1)
  1. MONISTAT [Suspect]
     Active Substance: MICONAZOLE NITRATE
     Indication: FUNGAL INFECTION
     Route: 067
     Dates: start: 20160722, end: 20160722

REACTIONS (5)
  - Chemical injury [None]
  - Pain [None]
  - Lacrimation increased [None]
  - Swelling [None]
  - Dysuria [None]

NARRATIVE: CASE EVENT DATE: 20160722
